FAERS Safety Report 8167083-7 (Version None)
Quarter: 2012Q1

REPORT INFORMATION
  Report Type: 
  Country: None (occurrence: None)
  Receive Date: 20120221
  Receipt Date: 20120209
  Transmission Date: 20120608
  Serious: Yes (Life-Threatening, Other)
  Sender: FDA-Public Use
  Company Number: 1129185

PATIENT
  Sex: Male
  Weight: 80 kg

DRUGS (3)
  1. NITRAZEPAM [Concomitant]
  2. DEXMEDETOMIDINE HYDROCHLORIDE [Suspect]
     Indication: CRANIOTOMY
     Dosage: 4 MICROGRAMS/ML @ 75 ML/HR. ONLY 7.24 ML GIVEN (UNKNOWN) INTRAVENOUS DRIP
     Route: 041
     Dates: start: 20111129, end: 20111129
  3. (RAPIFEN /00676302/) [Concomitant]

REACTIONS (4)
  - MUSCLE RIGIDITY [None]
  - APNOEA [None]
  - BLOOD PRESSURE DECREASED [None]
  - RESPIRATORY ARREST [None]
